FAERS Safety Report 8430883 (Version 7)
Quarter: 2013Q4

REPORT INFORMATION
  Report Type: Spontaneous
  Country: US (occurrence: None)
  Receive Date: 20120216
  Receipt Date: 20131206
  Transmission Date: 20140711
  Serious: Yes (Hospitalization, Other)
  Sender: FDA-Public Use
  Company Number: AUR-APL-2012-00902

PATIENT
  Age: 52 Year
  Sex: Female
  Weight: 63 kg

DRUGS (5)
  1. METFORMIN HYDROCHLORIDE [Suspect]
     Indication: DIABETES MELLITUS
     Dosage: ORAL
     Route: 048
  2. LYRICA [Suspect]
     Indication: NEUROPATHY PERIPHERAL
     Dosage: 300 MG (150 MG, 2 IN 1 D)
     Dates: start: 201205
  3. LYRICA [Suspect]
     Indication: FIBROMYALGIA
     Dosage: 300 MG (150 MG, 2 IN 1 D)
     Dates: start: 201205
  4. INSULIN NOS [Suspect]
     Indication: DIABETES MELLITUS
  5. OXYCODONE (OXYCODONE) [Concomitant]

REACTIONS (8)
  - Diabetes mellitus [None]
  - Fibromyalgia [None]
  - Diabetic neuropathy [None]
  - Cystitis [None]
  - Pain [None]
  - Nausea [None]
  - Local swelling [None]
  - Cellulitis [None]
